FAERS Safety Report 6035323-6 (Version None)
Quarter: 2009Q1

REPORT INFORMATION
  Report Type: 
  Country: None (occurrence: None)
  Receive Date: 20090108
  Receipt Date: 20090107
  Transmission Date: 20090719
  Serious: Yes (Death, Hospitalization)
  Sender: FDA-Public Use
  Company Number: 110458

PATIENT
  Age: 48 Year
  Sex: Male

DRUGS (11)
  1. NAPROXEN [Suspect]
     Indication: BACK PAIN
     Dosage: 375 MG / TID / ORAL
     Route: 048
  2. TENOFOVIR [Suspect]
  3. FUROSEMIDE [Suspect]
     Indication: ASCITES
  4. SPIRONOLACTONE [Suspect]
     Indication: ASCITES
  5. LOPINARVIR-RITONAVIR [Concomitant]
  6. COTRIM [Concomitant]
  7. QUININE [Concomitant]
  8. DIDANOSINE [Concomitant]
  9. HYDROMORPHONE HCL [Concomitant]
  10. OMEPRAZOLE [Concomitant]
  11. DIMENHYDRINATE [Concomitant]

REACTIONS (5)
  - ASCITES [None]
  - GENERAL PHYSICAL HEALTH DETERIORATION [None]
  - HEPATORENAL SYNDROME [None]
  - RENAL FAILURE ACUTE [None]
  - RENAL TUBULAR NECROSIS [None]
